FAERS Safety Report 5746005-X (Version None)
Quarter: 2008Q2

REPORT INFORMATION
  Report Type: 
  Country: None (occurrence: None)
  Receive Date: 20080522
  Receipt Date: 20080513
  Transmission Date: 20081010
  Serious: Yes (Other)
  Sender: FDA-Public Use
  Company Number: DE-RANBAXY-2008RR-15202

PATIENT

DRUGS (5)
  1. ASPIRIN [Suspect]
  2. HEPARIN [Suspect]
     Dosage: 5000U
     Route: 042
  3. ABCIXIMAB [Suspect]
  4. CLOPIDOGREL [Suspect]
  5. SIMVASTATIN [Suspect]

REACTIONS (2)
  - DRUG INTERACTION [None]
  - THROMBOCYTOPENIA [None]
